FAERS Safety Report 8162721-7 (Version None)
Quarter: 2012Q1

REPORT INFORMATION
  Report Type: 
  Country: None (occurrence: None)
  Receive Date: 20120103
  Receipt Date: 20111117
  Transmission Date: 20120608
  Serious: No
  Sender: FDA-Public Use
  Company Number: AE-2011-003642

PATIENT

DRUGS (3)
  1. PEGINTERFERON (PEGINTERFERON  ALFA-2A) [Concomitant]
  2. RIBAVIRIN [Concomitant]
  3. INCIVEK [Suspect]
     Dosage: ORAL
     Route: 048

REACTIONS (1)
  - HYPOCALCAEMIA [None]
